FAERS Safety Report 12880465 (Version 1)
Quarter: 2016Q4

REPORT INFORMATION
  Report Type: Spontaneous
  Country: US (occurrence: US)
  Receive Date: 20161025
  Receipt Date: 20161025
  Transmission Date: 20170207
  Serious: Yes (Other)
  Sender: FDA-Public Use
  Company Number: US-BAUSCH-BL-2016-017482

PATIENT
  Age: 31 Year
  Sex: Male

DRUGS (1)
  1. ATIVAN [Suspect]
     Active Substance: LORAZEPAM
     Indication: PREOPERATIVE CARE
     Route: 065
     Dates: start: 201605

REACTIONS (2)
  - Seizure [Unknown]
  - Drug interaction [Unknown]
